FAERS Safety Report 9246352 (Version 1)
Quarter: 2013Q2

REPORT INFORMATION
  Report Type: Report from Study
  Country: US (occurrence: US)
  Receive Date: 20130422
  Receipt Date: 20130422
  Transmission Date: 20140414
  Serious: Yes (Hospitalization)
  Sender: FDA-Public Use
  Company Number: US-ACTAVIS-2013-06612

PATIENT
  Age: 53 Year
  Sex: Male

DRUGS (2)
  1. CARBAMAZEPINE (AELLC) [Suspect]
     Indication: PRODUCT USED FOR UNKNOWN INDICATION
     Dosage: 100 MG, BID
     Route: 048
     Dates: start: 20130109
  2. CARBAMAZEPINE (AELLC) [Suspect]
     Dosage: 200 MG, BID
     Route: 048
     Dates: start: 20130112

REACTIONS (24)
  - Psychotic disorder [Recovered/Resolved]
  - Orthostatic hypotension [Recovered/Resolved]
  - Anxiety [Recovered/Resolved]
  - Tachycardia [Recovered/Resolved]
  - Blood pressure increased [Recovered/Resolved]
  - Supraventricular tachycardia [Recovered/Resolved]
  - Sinus tachycardia [Recovered/Resolved]
  - Drug interaction [Recovered/Resolved]
  - Atrioventricular block first degree [Recovered/Resolved]
  - Delusion [Recovered/Resolved]
  - Speech disorder [Recovered/Resolved]
  - Abnormal behaviour [Recovered/Resolved]
  - Dizziness [Recovered/Resolved]
  - Nervousness [Recovered/Resolved]
  - Agitation [Recovered/Resolved]
  - Irritability [Recovered/Resolved]
  - Paranoia [Recovered/Resolved]
  - Grandiosity [Recovered/Resolved]
  - Fear [Recovered/Resolved]
  - Judgement impaired [Recovered/Resolved]
  - Disturbance in attention [Recovered/Resolved]
  - Hypervigilance [Recovered/Resolved]
  - Cognitive disorder [Recovered/Resolved]
  - Circumstantiality [Recovered/Resolved]
